FAERS Safety Report 6315191-5 (Version None)
Quarter: 2009Q3

REPORT INFORMATION
  Report Type: 
  Country: None (occurrence: None)
  Receive Date: 20090819
  Receipt Date: 20090807
  Transmission Date: 20100115
  Serious: Yes (Death, Hospitalization)
  Sender: FDA-Public Use
  Company Number: GB-MERCK-0808GBR00065

PATIENT
  Age: 84 Year
  Sex: Female

DRUGS (11)
  1. FOSAMAX [Suspect]
     Indication: OSTEOPOROSIS
     Route: 048
     Dates: start: 20050101, end: 20060101
  2. ALENDRONATE SODIUM [Suspect]
     Indication: OSTEOPOROSIS
     Route: 048
     Dates: start: 20060701, end: 20070201
  3. ATORVASTATIN [Concomitant]
     Indication: BLOOD CHOLESTEROL INCREASED
     Route: 065
     Dates: end: 20070201
  4. DIGOXIN [Concomitant]
     Indication: ATRIAL FIBRILLATION
     Route: 065
     Dates: end: 20070201
  5. DONEPEZIL HYDROCHLORIDE [Concomitant]
     Indication: DEMENTIA
     Route: 065
     Dates: end: 20070201
  6. OMEPRAZOLE [Concomitant]
     Indication: OESOPHAGITIS
     Route: 065
     Dates: start: 20070101, end: 20070201
  7. CITALOPRAM [Concomitant]
     Indication: DEPRESSION
     Route: 065
     Dates: end: 20070201
  8. CITALOPRAM [Concomitant]
     Indication: DEMENTIA
     Route: 065
     Dates: end: 20070201
  9. ASPIRIN [Concomitant]
     Indication: ATRIAL FIBRILLATION
     Route: 065
     Dates: end: 20070201
  10. DIPYRIDAMOLE [Concomitant]
     Indication: ATRIAL FIBRILLATION
     Route: 065
     Dates: end: 20070201
  11. CARBIMAZOLE [Concomitant]
     Indication: HYPERTHYROIDISM
     Route: 048
     Dates: end: 20070201

REACTIONS (6)
  - CLOSTRIDIAL INFECTION [None]
  - COGNITIVE DISORDER [None]
  - DEHYDRATION [None]
  - FALL [None]
  - OESOPHAGITIS [None]
  - SEPSIS [None]
